FAERS Safety Report 17386780 (Version 7)
Quarter: 2020Q2

REPORT INFORMATION
  Report Type: Spontaneous
  Country: DE (occurrence: DE)
  Receive Date: 20200206
  Receipt Date: 20200603
  Transmission Date: 20200713
  Serious: Yes (Other)
  Sender: FDA-Public Use
  Company Number: DE-ASCEND THERAPEUTICS US, LLC-2079921

PATIENT
  Age: 54 Year
  Sex: Female
  Weight: 62 kg

DRUGS (4)
  1. ESTROGEL [Suspect]
     Active Substance: ESTRADIOL
     Indication: HORMONE REPLACEMENT THERAPY
     Route: 062
     Dates: start: 2007, end: 201908
  2. GYNOKADIN DOSIERGEL (ESTRADIOL) (GEL), UNKNOWN [Suspect]
     Active Substance: ESTRADIOL
     Route: 062
     Dates: start: 2007, end: 201908
  3. ESTROGEL [Suspect]
     Active Substance: ESTRADIOL
  4. ESTROGEL [Suspect]
     Active Substance: ESTRADIOL
     Indication: OOPHORECTOMY
     Route: 062
     Dates: start: 2007, end: 201908

REACTIONS (3)
  - Pulmonary mass [Not Recovered/Not Resolved]
  - Thrombophlebitis superficial [Not Recovered/Not Resolved]
  - Venous thrombosis limb [Not Recovered/Not Resolved]

NARRATIVE: CASE EVENT DATE: 2019
